FAERS Safety Report 11793842 (Version 1)
Quarter: 2015Q4

REPORT INFORMATION
  Report Type: Spontaneous
  Country: US (occurrence: None)
  Receive Date: 20151201
  Receipt Date: 20151201
  Transmission Date: 20160305
  Serious: Yes (Disabling)
  Sender: FDA-Public Use
  Company Number: None

PATIENT
  Age: 49 Year
  Sex: Female
  Weight: 95.26 kg

DRUGS (5)
  1. MULTI-VITAMIN [Concomitant]
     Active Substance: .ALPHA.-TOCOPHEROL ACETATE, DL-\ASCORBIC ACID\CYANOCOBALAMIN\FLUORIDE ION\FOLIC ACID\NIACIN\PYRIDOXINE\RIBOFLAVIN\THIAMINE\VITAMIN A\VITAMIN D
  2. NASAL SPRAY [Concomitant]
     Active Substance: UNSPECIFIED INGREDIENT
  3. TOPAMAX [Suspect]
     Active Substance: TOPIRAMATE
     Indication: MENOPAUSAL DISORDER
     Dosage: 1
     Route: 048
     Dates: start: 20150401, end: 20151106
  4. TOPAMAX [Suspect]
     Active Substance: TOPIRAMATE
     Indication: HYPERHIDROSIS
     Dosage: 1
     Route: 048
     Dates: start: 20150401, end: 20151106
  5. PAROXETINE [Concomitant]
     Active Substance: PAROXETINE\PAROXETINE HYDROCHLORIDE

REACTIONS (3)
  - Bruxism [None]
  - Vision blurred [None]
  - Aggression [None]

NARRATIVE: CASE EVENT DATE: 20151009
